FAERS Safety Report 7029769-7 (Version None)
Quarter: 2010Q4

REPORT INFORMATION
  Report Type: 
  Country: None (occurrence: None)
  Receive Date: 20101005
  Receipt Date: 20100930
  Transmission Date: 20110411
  Serious: Yes (Other)
  Sender: FDA-Public Use
  Company Number: DE-BRISTOL-MYERS SQUIBB COMPANY-15313745

PATIENT
  Sex: Male

DRUGS (1)
  1. ONGLYZA [Suspect]

REACTIONS (2)
  - LYMPHOCYTE COUNT DECREASED [None]
  - TUMOUR MARKER INCREASED [None]
